FAERS Safety Report 8539652-3 (Version None)
Quarter: 2012Q3

REPORT INFORMATION
  Report Type: 
  Country: None (occurrence: None)
  Receive Date: 20120726
  Receipt Date: 20120314
  Transmission Date: 20120928
  Serious: No
  Sender: FDA-Public Use
  Company Number: US-ASTRAZENECA-2006UW26493

PATIENT
  Age: 48 Year
  Sex: Female
  Weight: 86.2 kg

DRUGS (19)
  1. AMBIEN [Concomitant]
     Indication: SLEEP DISORDER
     Dates: start: 20060710
  2. SEROQUEL [Suspect]
     Route: 048
  3. SEROQUEL [Suspect]
     Route: 048
  4. SEROQUEL [Suspect]
     Route: 048
  5. SEROQUEL [Suspect]
     Route: 048
  6. SEROQUEL [Suspect]
     Route: 048
  7. SEROQUEL [Suspect]
     Route: 048
  8. KLONOPIN [Concomitant]
     Indication: ANXIETY
     Dates: start: 20060710
  9. SEROQUEL [Suspect]
     Indication: BIPOLAR DISORDER
     Dosage: 100MG -150MG
     Route: 048
     Dates: start: 20060710
  10. SEROQUEL [Suspect]
     Indication: SCHIZOPHRENIA
     Dosage: 100MG -150MG
     Route: 048
     Dates: start: 20060710
  11. SEROQUEL [Suspect]
     Route: 048
  12. SEROQUEL [Suspect]
     Indication: DEPRESSION
     Dosage: 100MG -150MG
     Route: 048
     Dates: start: 20060710
  13. SEROQUEL [Suspect]
     Route: 048
  14. SEROQUEL [Suspect]
     Route: 048
  15. SEROQUEL [Suspect]
     Route: 048
  16. LEXAPRO [Concomitant]
     Indication: DEPRESSION
     Dates: start: 20060710
  17. SEROQUEL [Suspect]
     Indication: AFFECTIVE DISORDER
     Dosage: 100MG -150MG
     Route: 048
     Dates: start: 20060710
  18. SEROQUEL [Suspect]
     Route: 048
  19. SEROQUEL [Suspect]
     Route: 048

REACTIONS (2)
  - MALAISE [None]
  - DIABETES MELLITUS [None]
